FAERS Safety Report 21979632 (Version 2)
Quarter: 2023Q1

REPORT INFORMATION
  Report Type: Report from Study
  Country: BR (occurrence: BR)
  Receive Date: 20230210
  Receipt Date: 20230307
  Transmission Date: 20230417
  Serious: Yes (Hospitalization, Other)
  Sender: FDA-Public Use
  Company Number: BR-JNJFOC-20230205801

PATIENT
  Sex: Female

DRUGS (4)
  1. SPRAVATO [Suspect]
     Active Substance: ESKETAMINE
     Indication: Major depression
     Dosage: TOTAL OF 9 SESSIONS, 25 DEVICES, WITH 1 EXTRA SESSION AND THEREFORE 3 MORE DEVICES THAN SCHEDULED
     Dates: start: 20221109, end: 20221207
  2. SPRAVATO [Suspect]
     Active Substance: ESKETAMINE
     Indication: Depression
     Dosage: TOTAL OF 4 SESSIONS, 12 DEVICES, ONLY ANTICIPATING THE DATE OF 1 OF THE SESSIONS DUE TO THE PATIENT^
     Dates: start: 20221212, end: 20221227
  3. SPRAVATO [Suspect]
     Active Substance: ESKETAMINE
     Dates: start: 20230109
  4. FLUOXETINE [Concomitant]
     Active Substance: FLUOXETINE HYDROCHLORIDE

REACTIONS (3)
  - Suicidal ideation [Unknown]
  - Depression [Unknown]
  - Off label use [Unknown]

NARRATIVE: CASE EVENT DATE: 20220101
